FAERS Safety Report 19285485 (Version 1)
Quarter: 2021Q2

REPORT INFORMATION
  Report Type: Spontaneous
  Country: US (occurrence: US)
  Receive Date: 20210521
  Receipt Date: 20210521
  Transmission Date: 20210717
  Serious: No
  Sender: FDA-Public Use
  Company Number: US-CELLTRION INC.-2021US006292

PATIENT

DRUGS (2)
  1. TRUXIMA [Suspect]
     Active Substance: RITUXIMAB-ABBS
     Indication: CRYOGLOBULINAEMIA
     Dosage: UNK
     Dates: start: 20210429
  2. TRUXIMA [Suspect]
     Active Substance: RITUXIMAB-ABBS
     Indication: HEPATITIS C
     Dosage: 700 MG, ONCE PER WEEK EVERY 3 WEEKS
     Dates: start: 20210506

REACTIONS (1)
  - Off label use [Unknown]
